FAERS Safety Report 8459400 (Version 6)
Quarter: 2013Q1

REPORT INFORMATION
  Report Type: Spontaneous
  Country: US (occurrence: US)
  Receive Date: 20120314
  Receipt Date: 20130126
  Transmission Date: 20140127
  Serious: No
  Sender: FDA-Public Use
  Company Number: US-ASTRAZENECA-2011SE49397

PATIENT
  Age: 76 Year
  Sex: Female

DRUGS (7)
  1. TOPROL XL [Suspect]
     Route: 048
  2. TOPROL XL [Suspect]
     Dosage: 150 MG
     Route: 048
  3. TOPROL XL [Suspect]
     Dosage: CUTTING PRESCRIPTIONS IN HALF
     Route: 048
  4. TOPROL XL [Suspect]
     Dosage: DOSE 50MG, TAKE TWO TABLETS A DAY
     Route: 048
  5. TOPROL XL [Suspect]
     Dosage: DOSE 50MG, ONE TABLETS A DAY
     Route: 048
  6. COZAAR [Concomitant]
  7. SPIRONOLACTONE [Concomitant]

REACTIONS (9)
  - Blood cortisol increased [Unknown]
  - Blood pressure inadequately controlled [Unknown]
  - Hypertension [Unknown]
  - Malaise [Unknown]
  - Stress [Unknown]
  - Chest discomfort [Unknown]
  - Chest pain [Unknown]
  - Intentional drug misuse [Unknown]
  - Drug effect incomplete [Unknown]
